FAERS Safety Report 5745113-7 (Version None)
Quarter: 2008Q2

REPORT INFORMATION
  Report Type: 
  Country: None (occurrence: None)
  Receive Date: 20080521
  Receipt Date: 20080506
  Transmission Date: 20081010
  Serious: Yes (Other)
  Sender: FDA-Public Use
  Company Number: PHEH2008US03944

PATIENT
  Age: 76 Year
  Sex: Female
  Weight: 73.922 kg

DRUGS (8)
  1. ZETIA [Concomitant]
     Dosage: 10 MG, QD
  2. TYLENOL [Concomitant]
     Dosage: UNK, PRN
  3. PROTONIX [Concomitant]
     Dosage: UNK, PRN
  4. FOSAMAX ONCE WEEKLY [Concomitant]
     Dosage: 35 MG, QW
  5. ASPIRIN [Concomitant]
     Dosage: 81 MG, QD
  6. VITAMIN CAP [Concomitant]
     Dosage: UNK, QD
  7. FEMARA [Suspect]
     Indication: BREAST CANCER
     Dosage: 2.5 MG, QD
     Route: 048
     Dates: start: 20070329, end: 20080101
  8. FEMARA [Suspect]
     Route: 048
     Dates: start: 20080201, end: 20080428

REACTIONS (16)
  - ARTHRALGIA [None]
  - BONE PAIN [None]
  - COUGH [None]
  - DIARRHOEA [None]
  - DYSPEPSIA [None]
  - DYSURIA [None]
  - FIBROMYALGIA [None]
  - GASTROOESOPHAGEAL REFLUX DISEASE [None]
  - HOT FLUSH [None]
  - HYPERHIDROSIS [None]
  - MUSCULAR WEAKNESS [None]
  - MYALGIA [None]
  - OEDEMA PERIPHERAL [None]
  - PAIN IN EXTREMITY [None]
  - SINUS HEADACHE [None]
  - VAGINAL ODOUR [None]
